FAERS Safety Report 4475213-3 (Version None)
Quarter: 2004Q4

REPORT INFORMATION
  Report Type: 
  Country: None (occurrence: None)
  Receive Date: 20041013
  Receipt Date: 20041013
  Transmission Date: 20050328
  Serious: Yes (Hospitalization)
  Sender: FDA-Public Use
  Company Number: None

PATIENT
  Age: 53 Year
  Sex: Female

DRUGS (8)
  1. METHOTREXATE [Suspect]
     Dosage: 15 MG ONCE WEEKLY ORAL
     Route: 048
  2. LEVETIRACETAM-KEPPRA [Concomitant]
  3. NADOLOL-CORGARD [Concomitant]
  4. XANAX [Concomitant]
  5. FLUOXZETINE-PROZAC [Concomitant]
  6. TEMAZEPAM-RESTORIL [Concomitant]
  7. LEVOTHYROXINE-SYNTHROID [Concomitant]
  8. LASIX [Concomitant]

REACTIONS (15)
  - ADRENAL INSUFFICIENCY [None]
  - ANURIA [None]
  - BONE PAIN [None]
  - DECREASED APPETITE [None]
  - DRUG TOXICITY [None]
  - DYSPNOEA [None]
  - EXCORIATION [None]
  - HYPOTENSION [None]
  - LETHARGY [None]
  - LEUKOPLAKIA [None]
  - PANCYTOPENIA [None]
  - PHARYNGEAL ULCERATION [None]
  - RASH [None]
  - RENAL FAILURE [None]
  - SKIN ULCER [None]
